FAERS Safety Report 15689013 (Version 3)
Quarter: 2018Q4

REPORT INFORMATION
  Report Type: Report from Study
  Country: None (occurrence: US)
  Receive Date: 20181205
  Receipt Date: 20181217
  Transmission Date: 20190205
  Serious: Yes (Other)
  Sender: FDA-Public Use
  Company Number: US-ABBVIE-18K-163-2574455-00

PATIENT
  Age: 18 Year
  Sex: Female
  Weight: 58 kg

DRUGS (2)
  1. HUMIRA [Suspect]
     Active Substance: ADALIMUMAB
     Indication: JUVENILE IDIOPATHIC ARTHRITIS
     Route: 058
     Dates: start: 201808, end: 201809
  2. HUMIRA [Suspect]
     Active Substance: ADALIMUMAB
     Route: 058
     Dates: start: 2018, end: 20181203

REACTIONS (11)
  - Upper respiratory tract infection [Recovered/Resolved]
  - Angiopathy [Not Recovered/Not Resolved]
  - Fatigue [Unknown]
  - Myalgia [Unknown]
  - Connective tissue disorder [Unknown]
  - Systemic lupus erythematosus [Not Recovered/Not Resolved]
  - Infectious mononucleosis [Unknown]
  - Autoimmune disorder [Unknown]
  - Blood immunoglobulin G increased [Unknown]
  - Antinuclear antibody positive [Unknown]
  - Heliotrope rash [Unknown]

NARRATIVE: CASE EVENT DATE: 2018
